FAERS Safety Report 8153024-5 (Version None)
Quarter: 2012Q1

REPORT INFORMATION
  Report Type: 
  Country: None (occurrence: None)
  Receive Date: 20120216
  Receipt Date: 20120209
  Transmission Date: 20120608
  Serious: Yes (Hospitalization)
  Sender: FDA-Public Use
  Company Number: AUR-APL-2012-00075

PATIENT
  Age: 84 Year
  Sex: Male
  Weight: 77.1 kg

DRUGS (18)
  1. TAMSULOSIN HCL [Concomitant]
  2. NIFEDIPINE [Suspect]
     Indication: HYPERTENSION
     Dosage: 60 MG (60 MG, 1 IN 1 D), ORAL
     Route: 048
     Dates: start: 20100101, end: 20110617
  3. CLONIDINE [Concomitant]
  4. LISINOPRIL [Concomitant]
  5. LISINOPRIL [Suspect]
     Indication: HYPERTENSION
     Dosage: 10 MG (10 MG, 1 IN 1 D), ORAL
     Route: 048
     Dates: start: 19890101, end: 20110619
  6. VITAMIN B COMPLEX (B -KOMPLEX) [Concomitant]
  7. TRAMADOL HCL [Concomitant]
  8. METFORMIN HCL [Concomitant]
  9. GABAPENTIN [Concomitant]
  10. AGGRENOX/ASA (ASASANTIN /00580301/ [Concomitant]
  11. METOPROLOL TARTRATE [Suspect]
     Indication: HYPERTENSION
     Dosage: 100 MG (100 MG, 1 IN 1 D), ORAL
     Route: 048
     Dates: start: 20000101, end: 20110617
  12. CELECOXIB; IBUPROFEN (NAPROXEN, PLACEBO (VALETHAMATE BROMIDE) [Suspect]
     Indication: RHEUMATOID ARTHRITIS
     Dates: start: 20100324, end: 20110804
  13. CELECOXIB; IBUPROFEN (NAPROXEN, PLACEBO (VALETHAMATE BROMIDE) [Suspect]
     Indication: OSTEOARTHRITIS
     Dates: start: 20100324, end: 20110804
  14. PRAZOSIN GITS [Suspect]
     Indication: HYPERTENSION
     Dosage: 2 MG (2 MG, 1 IN 1 D), ORAL
     Route: 048
     Dates: start: 20020101, end: 20110617
  15. VITAMIN D [Concomitant]
  16. LOVASTATIN [Concomitant]
  17. NEXIUM [Concomitant]
  18. GEMFIBROZIL [Concomitant]

REACTIONS (1)
  - ORTHOSTATIC HYPOTENSION [None]
